FAERS Safety Report 7547370-3 (Version None)
Quarter: 2011Q2

REPORT INFORMATION
  Report Type: 
  Country: None (occurrence: None)
  Receive Date: 20110614
  Receipt Date: 20110607
  Transmission Date: 20111010
  Serious: Yes (Hospitalization, Other)
  Sender: FDA-Public Use
  Company Number: JP-ROXANE LABORATORIES, INC.-2011-RO-00781RO

PATIENT
  Age: 70 Year
  Sex: Female

DRUGS (5)
  1. DEXAMETHASONE [Suspect]
     Indication: MULTIPLE MYELOMA
  2. VINCRISTINE [Suspect]
     Indication: MULTIPLE MYELOMA
  3. MELPHALAN HYDROCHLORIDE [Suspect]
     Indication: MULTIPLE MYELOMA
  4. DOXORUBICIN HCL [Suspect]
     Indication: MULTIPLE MYELOMA
  5. PREDNISOLONE [Suspect]
     Indication: MULTIPLE MYELOMA

REACTIONS (4)
  - LIVER DISORDER [None]
  - TYPE 1 DIABETES MELLITUS [None]
  - EPSTEIN-BARR VIRUS INFECTION [None]
  - ERYTHEMA MULTIFORME [None]
